FAERS Safety Report 14366513 (Version 1)
Quarter: 2018Q1

REPORT INFORMATION
  Report Type: Spontaneous
  Country: US (occurrence: US)
  Receive Date: 20180109
  Receipt Date: 20180109
  Transmission Date: 20180509
  Serious: No
  Sender: FDA-Public Use
  Company Number: US-ASTRAZENECA-2017SF29598

PATIENT
  Sex: Male

DRUGS (3)
  1. PULMICORT RESPULES [Suspect]
     Active Substance: BUDESONIDE
     Dosage: BUDESONIDE INHALATION SUSPENSION
     Route: 055
  2. ALBUTEROL. [Concomitant]
     Active Substance: ALBUTEROL
  3. PULMICORT RESPULES [Suspect]
     Active Substance: BUDESONIDE
     Dosage: 1 MG PER 2 ML, TWO TIMES A DAY
     Route: 055

REACTIONS (4)
  - Drug hypersensitivity [Not Recovered/Not Resolved]
  - Lip exfoliation [Recovered/Resolved]
  - Dyspnoea [Recovered/Resolved]
  - Lip discolouration [Recovered/Resolved]
